FAERS Safety Report 9419408 (Version 1)
Quarter: 2013Q3

REPORT INFORMATION
  Report Type: Spontaneous
  Country: US (occurrence: US)
  Receive Date: 20130725
  Receipt Date: 20130725
  Transmission Date: 20140515
  Serious: No
  Sender: FDA-Public Use
  Company Number: US-BAYER-2013-089781

PATIENT
  Sex: Female
  Weight: 53 kg

DRUGS (15)
  1. BETASERON [Suspect]
     Dosage: 0.3 MG, UNK
  2. REBIF [Concomitant]
     Dosage: 44/0.5
  3. AMPYRA [Concomitant]
     Dosage: 10 MG, UNK
  4. BACLOFEN [Concomitant]
     Dosage: 10 MG, UNK
  5. WELLBUTRIN SR [Concomitant]
     Dosage: 150 MG, UNK
  6. NEURONTIN [Concomitant]
     Dosage: 100 MG, UNK
  7. ALBUTEROL [Concomitant]
     Dosage: 90 ?G, UNK
  8. NORVASC [Concomitant]
     Dosage: 10 MG, UNK
  9. PROTONIX [Concomitant]
     Dosage: 40 MG, UNK
  10. MACROBID [Concomitant]
     Dosage: 100 MG, UNK
  11. KLONOPIN [Concomitant]
     Dosage: 0.5 UNK, UNK
  12. RITALIN LA [Concomitant]
     Dosage: 40 MG, UNK
  13. DURAGESIC [Concomitant]
     Dosage: 100 ?G/H, UNK
  14. HYDROCODONE BITARTRATE [Concomitant]
     Dosage: 5-500 MG
  15. VITAMIN D [Concomitant]
     Dosage: 1000 U, UNK

REACTIONS (1)
  - Drug ineffective [Unknown]
